FAERS Safety Report 9647095 (Version 2)
Quarter: 2013Q4

REPORT INFORMATION
  Report Type: Spontaneous
  Country: US (occurrence: US)
  Receive Date: 20131027
  Receipt Date: 20131027
  Transmission Date: 20140711
  Serious: Yes (Other)
  Sender: FDA-Public Use
  Company Number: US-NAPPMUNDI-USA-2013-0104286

PATIENT
  Sex: Female

DRUGS (3)
  1. OXYCONTIN (NDA 22-272) [Suspect]
     Indication: DRUG ABUSE
     Dosage: UNK UNK, SEE TEXT
     Route: 065
  2. HEROIN [Suspect]
     Indication: SUBSTANCE ABUSE
     Route: 065
  3. MARIJUANA [Suspect]
     Indication: SUBSTANCE ABUSE
     Route: 065

REACTIONS (1)
  - Substance abuse [Unknown]
